FAERS Safety Report 13833935 (Version 1)
Quarter: 2017Q3

REPORT INFORMATION
  Report Type: Spontaneous
  Country: IT (occurrence: IT)
  Receive Date: 20170804
  Receipt Date: 20170804
  Transmission Date: 20171127
  Serious: Yes (Other)
  Sender: FDA-Public Use
  Company Number: IT-PFIZER INC-2017335228

PATIENT
  Age: 64 Year
  Sex: Male

DRUGS (5)
  1. DOXORUBICIN HCL [Suspect]
     Active Substance: DOXORUBICIN HYDROCHLORIDE
     Indication: MYELODYSPLASTIC SYNDROME
     Dosage: UNK UNK, CYCLIC EVERY 21 DAYS FOR SIX CYCLES
  2. VINCRISTINE SULFATE. [Suspect]
     Active Substance: VINCRISTINE SULFATE
     Indication: MYELODYSPLASTIC SYNDROME
     Dosage: UNK UNK, CYCLIC EVERY 21 DAYS FOR SIX CYCLES
  3. RITUXIMAB. [Suspect]
     Active Substance: RITUXIMAB
     Indication: MYELODYSPLASTIC SYNDROME
     Dosage: UNK UNK, CYCLIC EVERY 21 DAYS FOR SIX CYCLES
  4. CYCLOPHOSPHAMIDE. [Suspect]
     Active Substance: CYCLOPHOSPHAMIDE
     Indication: MYELODYSPLASTIC SYNDROME
     Dosage: UNK UNK, CYCLIC EVERY 21 DAYS FOR SIX CYCLES
  5. PREDNISONE. [Suspect]
     Active Substance: PREDNISONE
     Indication: MYELODYSPLASTIC SYNDROME
     Dosage: UNK UNK, CYCLIC EVERY 21 DAYS FOR SIX CYCLES

REACTIONS (3)
  - Thrombocytopenia [Unknown]
  - Neutropenia [Unknown]
  - Anaemia [Unknown]
